FAERS Safety Report 12995905 (Version 2)
Quarter: 2016Q4

REPORT INFORMATION
  Report Type: Spontaneous
  Country: FR (occurrence: FR)
  Receive Date: 20161202
  Receipt Date: 20161229
  Transmission Date: 20170207
  Serious: Yes (Hospitalization)
  Sender: FDA-Public Use
  Company Number: FR-ELI_LILLY_AND_COMPANY-FR201612000101

PATIENT
  Age: 41 Year
  Sex: Male

DRUGS (6)
  1. COUMADIN [Suspect]
     Active Substance: WARFARIN SODIUM
     Dosage: 4 MG, QD
     Route: 048
     Dates: start: 20161026, end: 20161108
  2. PROZAC [Suspect]
     Active Substance: FLUOXETINE HYDROCHLORIDE
     Indication: DEPRESSION
     Dosage: 20 MG, QD
     Route: 048
     Dates: start: 20161027
  3. COUMADIN [Suspect]
     Active Substance: WARFARIN SODIUM
     Indication: THROMBOSIS
     Dosage: UNK, UNKNOWN
     Route: 048
     Dates: start: 20161020, end: 20161021
  4. LOVENOX [Concomitant]
     Active Substance: ENOXAPARIN SODIUM
     Dosage: 3000 IU, BID
     Route: 058
     Dates: start: 20161017, end: 20161018
  5. LOVENOX [Concomitant]
     Active Substance: ENOXAPARIN SODIUM
     Indication: THROMBOSIS
     Dosage: 4000 IU, BID
     Route: 058
     Dates: start: 20160930
  6. LOVENOX [Concomitant]
     Active Substance: ENOXAPARIN SODIUM
     Dosage: 8000 IU, BID
     Route: 058
     Dates: start: 20161019

REACTIONS (4)
  - International normalised ratio increased [Recovered/Resolved]
  - Anaemia [Recovered/Resolved]
  - Haematuria [Recovered/Resolved]
  - Muscle haemorrhage [Recovered/Resolved]

NARRATIVE: CASE EVENT DATE: 201611
